FAERS Safety Report 4788950-8 (Version None)
Quarter: 2005Q4

REPORT INFORMATION
  Report Type: 
  Country: None (occurrence: None)
  Receive Date: 20051004
  Receipt Date: 20050921
  Transmission Date: 20060501
  Serious: Yes (Hospitalization, Other)
  Sender: FDA-Public Use
  Company Number: 2005131004

PATIENT
  Sex: Female
  Weight: 54.4316 kg

DRUGS (1)
  1. UNISOM [Suspect]
     Indication: INTENTIONAL DRUG MISUSE
     Dosage: 288 TABLETS ONCE, ORAL
     Route: 048
     Dates: start: 20050917, end: 20050917

REACTIONS (5)
  - CARDIAC FAILURE [None]
  - CONVULSION [None]
  - INTENTIONAL DRUG MISUSE [None]
  - OVERDOSE [None]
  - RENAL FAILURE [None]
